FAERS Safety Report 4897356-2 (Version None)
Quarter: 2005Q4

REPORT INFORMATION
  Report Type: 
  Country: None (occurrence: None)
  Receive Date: 20051223
  Receipt Date: 20051104
  Transmission Date: 20060501
  Serious: No
  Sender: FDA-Public Use
  Company Number: 05P-163-0316568-00

PATIENT
  Age: 50 Year
  Sex: Female
  Weight: 113.6 kg

DRUGS (7)
  1. HUMIRA [Suspect]
     Indication: RHEUMATOID ARTHRITIS
     Dosage: 40 MG, 1 IN 2 WK, SUBCUTANEOUS
     Route: 058
     Dates: start: 20051005, end: 20051012
  2. LEFLUNOMIDE [Concomitant]
  3. ATENOLOL [Concomitant]
  4. DETROL LA [Concomitant]
  5. ESOMEPRAZOLE [Concomitant]
  6. PAROXETINE HYDROCHLORIDE [Concomitant]
  7. PREDNISONE [Concomitant]

REACTIONS (1)
  - INFLUENZA LIKE ILLNESS [None]
